FAERS Safety Report 11381018 (Version 1)
Quarter: 2015Q3

REPORT INFORMATION
  Report Type: Spontaneous
  Country: US (occurrence: None)
  Receive Date: 20150813
  Receipt Date: 20150813
  Transmission Date: 20151125
  Serious: Yes (Life-Threatening, Hospitalization)
  Sender: FDA-Public Use
  Company Number: None

PATIENT
  Age: 68 Year
  Sex: Male

DRUGS (2)
  1. LIDOCAINE. [Suspect]
     Active Substance: LIDOCAINE
     Indication: SURGERY
     Dates: start: 20150319, end: 20150319
  2. DIPHENHYDRAMINE. [Suspect]
     Active Substance: DIPHENHYDRAMINE
     Indication: SURGERY
     Dosage: ML    SQ
     Route: 058
     Dates: start: 20150319, end: 20150319

REACTIONS (2)
  - Hyperthermia [None]
  - Hypotension [None]

NARRATIVE: CASE EVENT DATE: 20150319
